FAERS Safety Report 11553149 (Version 2)
Quarter: 2015Q4

REPORT INFORMATION
  Report Type: Spontaneous
  Country: US (occurrence: US)
  Receive Date: 20150925
  Receipt Date: 20151111
  Transmission Date: 20160304
  Serious: Yes (Hospitalization, Other)
  Sender: FDA-Public Use
  Company Number: US-GLAXOSMITHKLINE-US2015136348

PATIENT
  Sex: Female

DRUGS (9)
  1. MELOXICAM. [Concomitant]
     Active Substance: MELOXICAM
  2. FLUOXETINE [Concomitant]
     Active Substance: FLUOXETINE HYDROCHLORIDE
  3. FISH OIL [Concomitant]
     Active Substance: FISH OIL
  4. TUMS [Concomitant]
     Active Substance: CALCIUM CARBONATE
  5. MULTIVITAMIN [Concomitant]
     Active Substance: VITAMINS
  6. ADVAIR DISKUS [Suspect]
     Active Substance: FLUTICASONE PROPIONATE\SALMETEROL XINAFOATE
     Indication: CHRONIC OBSTRUCTIVE PULMONARY DISEASE
     Dosage: 1 PUFF(S), BID
     Route: 055
  7. LISINOPRIL. [Concomitant]
     Active Substance: LISINOPRIL
  8. METFORMIN [Concomitant]
     Active Substance: METFORMIN HYDROCHLORIDE
  9. PROVENTIL [Concomitant]
     Active Substance: ALBUTEROL

REACTIONS (7)
  - Postoperative wound infection [Unknown]
  - Postoperative wound complication [Unknown]
  - Impaired healing [Unknown]
  - Upper limb fracture [Recovered/Resolved with Sequelae]
  - Gastric bypass [Recovered/Resolved]
  - Hernia [Unknown]
  - Suture removal [Recovered/Resolved]

NARRATIVE: CASE EVENT DATE: 2005
